FAERS Safety Report 14118085 (Version 2)
Quarter: 2019Q4

REPORT INFORMATION
  Report Type: Report from Study
  Country: US (occurrence: US)
  Receive Date: 20171024
  Receipt Date: 20191225
  Transmission Date: 20200122
  Serious: No
  Sender: FDA-Public Use
  Company Number: US-AMGEN-USASL2017160573

PATIENT
  Age: 47 Year
  Sex: Male

DRUGS (3)
  1. ENBREL [Suspect]
     Active Substance: ETANERCEPT
     Indication: RHEUMATOID ARTHRITIS
     Dosage: 50 MILLIGRAM, QWK
     Route: 065
  2. ENBREL [Suspect]
     Active Substance: ETANERCEPT
     Dosage: 50 MILLIGRAM
     Route: 065
     Dates: start: 2019
  3. ENBREL [Suspect]
     Active Substance: ETANERCEPT
     Dosage: 50 MILLIGRAM
     Route: 065
     Dates: end: 2019

REACTIONS (6)
  - Injection site erythema [Unknown]
  - Injection site swelling [Unknown]
  - Device issue [Unknown]
  - Incorrect dose administered by device [Unknown]
  - Injection site warmth [Unknown]
  - Malaise [Unknown]

NARRATIVE: CASE EVENT DATE: 20171022
